FAERS Safety Report 4550620-9 (Version None)
Quarter: 2004Q4

REPORT INFORMATION
  Report Type: 
  Country: None (occurrence: None)
  Receive Date: 20041227
  Receipt Date: 20040907
  Transmission Date: 20050328
  Serious: No
  Sender: FDA-Public Use
  Company Number: 04P-163-0272574-00

PATIENT
  Age: 52 Year
  Sex: Female
  Weight: 83.9154 kg

DRUGS (13)
  1. HUMIRA [Suspect]
     Indication: RHEUMATOID ARTHRITIS
     Dosage: 40 MG, 1 IN 2 WK, SUBCUTANEOUS
     Route: 058
     Dates: start: 20040401
  2. METHOTREXATE [Concomitant]
  3. BUCINDOLOL HYDROCHLORIDE [Concomitant]
  4. ATENOLOL [Concomitant]
  5. LEVOTHYROXINE SODIUM [Concomitant]
  6. SERTRALINE HYDROCHLORIDE [Concomitant]
  7. BUPROPION HYDROCHLORIDE [Concomitant]
  8. TRAZODONE [Concomitant]
  9. METAXALONE [Concomitant]
  10. OXYCONTIN [Concomitant]
  11. ............. [Concomitant]
  12. FOLIC ACID [Concomitant]
  13. MULTI-VITAMINS [Concomitant]

REACTIONS (2)
  - ALOPECIA [None]
  - LYMPHOEDEMA [None]
